FAERS Safety Report 16632291 (Version 1)
Quarter: 2019Q3

REPORT INFORMATION
  Report Type: Spontaneous
  Country: US (occurrence: US)
  Receive Date: 20190725
  Receipt Date: 20190725
  Transmission Date: 20191004
  Serious: No
  Sender: FDA-Public Use
  Company Number: US-ABBVIE-18S-163-2501364-00

PATIENT
  Sex: Male

DRUGS (3)
  1. XTANDI [Suspect]
     Active Substance: ENZALUTAMIDE
     Route: 048
  2. XTANDI [Suspect]
     Active Substance: ENZALUTAMIDE
     Indication: PROSTATE CANCER
     Route: 048
     Dates: start: 20170425
  3. SYNTHROID [Suspect]
     Active Substance: LEVOTHYROXINE SODIUM
     Indication: PRODUCT USED FOR UNKNOWN INDICATION
     Route: 048

REACTIONS (9)
  - Expired product administered [Unknown]
  - Thyroid disorder [Unknown]
  - Rash [Unknown]
  - Gait disturbance [Recovered/Resolved]
  - Reaction to colouring [Unknown]
  - Chest pain [Unknown]
  - Back pain [Unknown]
  - Asthenia [Recovered/Resolved]
  - Fatigue [Unknown]
